FAERS Safety Report 8586467-6 (Version None)
Quarter: 2012Q3

REPORT INFORMATION
  Report Type: 
  Country: None (occurrence: None)
  Receive Date: 20120810
  Receipt Date: 20120801
  Transmission Date: 20120928
  Serious: Yes (Hospitalization)
  Sender: FDA-Public Use
  Company Number: FR-ASTRAZENECA-2012SE54969

PATIENT
  Age: 908 Month
  Sex: Female

DRUGS (7)
  1. COUMADIN [Suspect]
     Route: 048
  2. TEMERIT DUO [Concomitant]
     Route: 048
  3. ZESTRIL [Concomitant]
     Route: 048
  4. LERCAPRESS [Concomitant]
     Route: 048
  5. ARIMIDEX [Suspect]
     Indication: BREAST CANCER FEMALE
     Route: 048
  6. ZOCOR [Concomitant]
     Route: 048
  7. ZOPICLONE [Concomitant]
     Route: 048

REACTIONS (1)
  - HAEMARTHROSIS [None]
